FAERS Safety Report 5156863-8 (Version None)
Quarter: 2006Q4

REPORT INFORMATION
  Report Type: 
  Country: None (occurrence: None)
  Receive Date: 20061115
  Receipt Date: 20061102
  Transmission Date: 20070319
  Serious: Yes (Hospitalization)
  Sender: FDA-Public Use
  Company Number: 2006136006

PATIENT
  Age: 90 Year
  Sex: Female

DRUGS (7)
  1. LYRICA [Suspect]
     Indication: BACK PAIN
     Dosage: ORAL
     Route: 048
     Dates: start: 20060724
  2. OXYCONTIN [Concomitant]
  3. TRAMADOL HCL [Concomitant]
  4. DILTIAZEM [Concomitant]
  5. BUMETANIDE [Concomitant]
  6. SELOKEEN (METOPROLOL TARTRATE) [Concomitant]
  7. MOVICOLON (MACROGOL, POTASSIUM CHLORIDE, SODIUM BICARBONATE, SODIUM CH [Concomitant]

REACTIONS (1)
  - MUSCULOSKELETAL DISORDER [None]
